FAERS Safety Report 6413067-6 (Version None)
Quarter: 2009Q4

REPORT INFORMATION
  Report Type: 
  Country: None (occurrence: None)
  Receive Date: 20091026
  Receipt Date: 20091014
  Transmission Date: 20100525
  Serious: Yes (Hospitalization)
  Sender: FDA-Public Use
  Company Number: US-WYE-G04652709

PATIENT
  Sex: Male

DRUGS (5)
  1. LANSOPRAZOLE [Suspect]
     Indication: DRUG USE FOR UNKNOWN INDICATION
     Dosage: 15MG, QAM
     Route: 048
     Dates: start: 20090921
  2. PULMICORT [Concomitant]
     Indication: RESPIRATORY DISTRESS
     Dosage: 1/2 AMPULE, 2 IN 1 DAY
     Route: 055
     Dates: start: 20090901
  3. AZITHROMYCIN [Concomitant]
     Indication: RESPIRATORY DISTRESS
     Dosage: 1/2 TSP ON DAY ONE, 1/4 TSP QD FOR 4 DAYS
     Route: 048
     Dates: start: 20090914, end: 20090919
  4. AZITHROMYCIN [Concomitant]
     Indication: RESPIRATORY TRACT INFECTION
  5. NYSTATIN [Concomitant]
     Dosage: TWICE DAILY, DOSE UNKNOWN
     Route: 061
     Dates: start: 20091012

REACTIONS (2)
  - PNEUMONIA [None]
  - TONGUE DISCOLOURATION [None]
